FAERS Safety Report 5225875-8 (Version None)
Quarter: 2007Q1

REPORT INFORMATION
  Report Type: 
  Country: None (occurrence: None)
  Receive Date: 20070130
  Receipt Date: 20070130
  Transmission Date: 20070707
  Serious: No
  Sender: FDA-Public Use
  Company Number: None

PATIENT
  Age: 49 Year
  Sex: Female
  Weight: 52.1637 kg

DRUGS (5)
  1. CITALOPRAM HYDROBROMIDE 10 MG ROXANNE LABS [Suspect]
     Indication: ANXIETY
     Dosage: 2 TO 4 MGS  1 X PER DAY PO
     Route: 048
     Dates: start: 20061107, end: 20061222
  2. CITALOPRAM HYDROBROMIDE 10 MG ROXANNE LABS [Suspect]
     Indication: DEPRESSION
     Dosage: 2 TO 4 MGS  1 X PER DAY PO
     Route: 048
     Dates: start: 20061107, end: 20061222
  3. STRATTERA  PILL ?? 10 MG NONGENERIC [Suspect]
     Indication: AGEUSIA
     Dosage: OPENED CAPSULE , WITH FOOD 1 X PER DAY PO
     Route: 048
  4. STRATTERA  PILL ?? 10 MG NONGENERIC [Suspect]
     Indication: ANXIETY
     Dosage: OPENED CAPSULE , WITH FOOD 1 X PER DAY PO
     Route: 048
  5. STRATTERA  PILL ?? 10 MG NONGENERIC [Suspect]
     Indication: DEPRESSION
     Dosage: OPENED CAPSULE , WITH FOOD 1 X PER DAY PO
     Route: 048

REACTIONS (4)
  - HYPOAESTHESIA [None]
  - ORGASM ABNORMAL [None]
  - SENSORY DISTURBANCE [None]
  - SEXUAL DYSFUNCTION [None]
